FAERS Safety Report 4380267-9 (Version None)
Quarter: 2004Q2

REPORT INFORMATION
  Report Type: 
  Country: None (occurrence: None)
  Receive Date: 20040618
  Receipt Date: 20040607
  Transmission Date: 20050107
  Serious: Yes (Disabling)
  Sender: FDA-Public Use
  Company Number: PHFR2004GB02462

PATIENT
  Age: 74 Year
  Sex: Male

DRUGS (7)
  1. TERBINAFINE HCL [Suspect]
     Dosage: 250 MG, QD
     Route: 048
     Dates: start: 20040426, end: 20040520
  2. SIMVASTATIN [Suspect]
     Dosage: 20MG/DAY
     Route: 048
     Dates: start: 20030721, end: 20040520
  3. MIXTARD                                 /DEN/ [Concomitant]
     Route: 058
  4. HUMULIN M3 [Concomitant]
     Route: 065
     Dates: start: 20031201
  5. LANSOPRAZOLE [Concomitant]
     Dosage: 30MG/DAY
     Route: 065
     Dates: start: 20030101
  6. PERINDOPRIL [Concomitant]
     Indication: BLOOD PRESSURE INCREASED
     Dosage: 4MG/DAY
     Route: 065
     Dates: start: 20020101
  7. BENDROFLUAZIDE [Concomitant]
     Indication: BLOOD PRESSURE INCREASED
     Dosage: 2.5MG/DAY
     Route: 065
     Dates: start: 20020101

REACTIONS (2)
  - BLOOD CREATINE PHOSPHOKINASE INCREASED [None]
  - MYALGIA [None]
